FAERS Safety Report 10526968 (Version 1)
Quarter: 2014Q4

REPORT INFORMATION
  Report Type: Spontaneous
  Country: US (occurrence: None)
  Receive Date: 20141016
  Receipt Date: 20141016
  Transmission Date: 20150528
  Serious: Yes (Other)
  Sender: FDA-Public Use
  Company Number: 2014-US-013090

PATIENT
  Age: 58 Year
  Sex: Female
  Weight: 63 kg

DRUGS (2)
  1. XYREM [Suspect]
     Active Substance: SODIUM OXYBATE
     Indication: INSOMNIA
     Route: 048
     Dates: start: 200402
  2. SHINGLES VACCINE (VIRAL VACCINES) [Suspect]
     Active Substance: VARICELLA-ZOSTER VIRUS STRAIN OKA/MERCK LIVE ANTIGEN
     Indication: IMMUNISATION

REACTIONS (8)
  - Inappropriate schedule of drug administration [None]
  - Vaccination complication [None]
  - Muscular weakness [None]
  - Headache [None]
  - Off label use [None]
  - Cerebrovascular accident [None]
  - Dysarthria [None]
  - Nausea [None]

NARRATIVE: CASE EVENT DATE: 201409
